FAERS Safety Report 23948825 (Version 1)
Quarter: 2024Q2

REPORT INFORMATION
  Report Type: Spontaneous
  Country: HU (occurrence: HU)
  Receive Date: 20240607
  Receipt Date: 20240607
  Transmission Date: 20240716
  Serious: Yes (Other)
  Sender: FDA-Public Use
  Company Number: None

PATIENT

DRUGS (1)
  1. CARBAGLU [Suspect]
     Active Substance: CARGLUMIC ACID
     Indication: Methylmalonic acidaemia
     Dosage: ONE DISPERSING TABLET THREE TIMES DAILY ORALY, THEN HALF TABLET THREE TIMES DAILY ORALY, THEN QUARTE
     Route: 048
     Dates: start: 202307, end: 20230921

REACTIONS (7)
  - Hyperhidrosis [Recovered/Resolved]
  - Regurgitation [Recovered/Resolved]
  - Early satiety [Recovered/Resolved]
  - Eructation [Recovered/Resolved]
  - Constipation [Recovered/Resolved]
  - Asthenia [Recovered/Resolved]
  - Vomiting [Recovered/Resolved]

NARRATIVE: CASE EVENT DATE: 20230712
